FAERS Safety Report 6680175-4 (Version None)
Quarter: 2010Q2

REPORT INFORMATION
  Report Type: 
  Country: None (occurrence: None)
  Receive Date: 20100413
  Receipt Date: 20100401
  Transmission Date: 20101027
  Serious: Yes (Hospitalization)
  Sender: FDA-Public Use
  Company Number: DE-ELI_LILLY_AND_COMPANY-DE201002004038

PATIENT
  Sex: Male

DRUGS (10)
  1. ZYPADHERA [Suspect]
     Indication: DELUSIONAL DISORDER, UNSPECIFIED TYPE
     Dosage: 300 MG, UNKNOWN
     Route: 030
     Dates: start: 20091207, end: 20091207
  2. ZYPADHERA [Suspect]
     Dosage: 210 MG, UNKNOWN
     Route: 030
     Dates: start: 20091221, end: 20091221
  3. ZYPADHERA [Suspect]
     Dosage: 210 MG, UNKNOWN
     Route: 030
     Dates: start: 20100104, end: 20100104
  4. ZYPADHERA [Suspect]
     Dosage: 150 MG, UNKNOWN
     Route: 030
     Dates: start: 20100118, end: 20100118
  5. ZYPADHERA [Suspect]
     Dosage: 150 MG, UNKNOWN
     Route: 030
     Dates: start: 20100201, end: 20100201
  6. ZYPADHERA [Suspect]
     Dosage: 150 MG, UNKNOWN
     Route: 030
     Dates: start: 20100215, end: 20100215
  7. ZYPADHERA [Suspect]
     Dosage: 150 MG, UNKNOWN
     Route: 030
     Dates: start: 20100308, end: 20100308
  8. ZYPREXA [Suspect]
     Dosage: 30 MG, UNKNOWN
     Route: 065
     Dates: end: 20081001
  9. ZYPREXA [Suspect]
     Dosage: 7.5 MG, DAILY (1/D)
     Route: 048
     Dates: start: 20081027, end: 20080101
  10. ZYPREXA [Suspect]
     Dosage: 2.5 MG, UNKNOWN
     Route: 065
     Dates: start: 20081228, end: 20090428

REACTIONS (4)
  - BLOOD TRIGLYCERIDES INCREASED [None]
  - HOSPITALISATION [None]
  - INSOMNIA [None]
  - MYOCLONUS [None]
